FAERS Safety Report 22048866 (Version 3)
Quarter: 2023Q2

REPORT INFORMATION
  Report Type: Spontaneous
  Country: US (occurrence: None)
  Receive Date: 20230301
  Receipt Date: 20230425
  Transmission Date: 20230722
  Serious: No
  Sender: FDA-Public Use
  Company Number: 2023A041253

PATIENT
  Age: 14453 Day
  Sex: Female
  Weight: 52.2 kg

DRUGS (3)
  1. FASENRA [Suspect]
     Active Substance: BENRALIZUMAB
     Indication: Asthma
     Dosage: 30MG/ML EVERY 4 WEEKS FOR THE FIRST 3 DOSES
     Route: 058
  2. FASENRA [Suspect]
     Active Substance: BENRALIZUMAB
     Indication: Asthma
     Dosage: 30MG/ML EVERY 8 WEEKS THEREAFTER
     Route: 058
  3. FASENRA [Suspect]
     Active Substance: BENRALIZUMAB
     Indication: Asthma
     Dosage: EVERY 4 WEEKS FOR THE FIRST 3 DOSES, FOLLOWED BY EVERY 8 WEEKS THEREAFTER OVER 2 YEARS AGO
     Route: 058

REACTIONS (4)
  - Injection site haemorrhage [Unknown]
  - Device use issue [Unknown]
  - Device issue [Unknown]
  - Device leakage [Unknown]

NARRATIVE: CASE EVENT DATE: 20230214
